FAERS Safety Report 13561609 (Version 5)
Quarter: 2020Q3

REPORT INFORMATION
  Report Type: Report from Study
  Country: ES (occurrence: ES)
  Receive Date: 20170518
  Receipt Date: 20200929
  Transmission Date: 20201102
  Serious: Yes (Death, Life-Threatening)
  Sender: FDA-Public Use
  Company Number: ES-ALLERGAN-1720312US

PATIENT
  Sex: Female
  Weight: 60 kg

DRUGS (27)
  1. CEFTAZIDIME;AVIBACTAM ? BP [Suspect]
     Active Substance: AVIBACTAM SODIUM\CEFTAZIDIME
     Indication: ABDOMINAL INFECTION
     Dosage: 1 G, Q12H
     Route: 042
     Dates: start: 20170408, end: 20170424
  2. ANIDULAFUNGIN [Concomitant]
     Active Substance: ANIDULAFUNGIN
     Dosage: UNK
     Dates: start: 20170421
  3. OMEPRAZOL [Concomitant]
     Active Substance: OMEPRAZOLE
     Dosage: UNK
     Dates: start: 20170314
  4. LINEZOLID. [Concomitant]
     Active Substance: LINEZOLID
     Dosage: UNK
     Dates: start: 20170407, end: 20170413
  5. FLAGYL [Suspect]
     Active Substance: METRONIDAZOLE\METRONIDAZOLE HYDROCHLORIDE
     Indication: ABDOMINAL INFECTION
  6. MIDAZOLAM. [Suspect]
     Active Substance: MIDAZOLAM
     Indication: SEDATION
     Dosage: 60 MG DAILY, (CONTINUOUS PERFUSION 60 MG/24 HOURS)
     Dates: start: 20170413, end: 20170419
  7. LEVETIRACETAM. [Concomitant]
     Active Substance: LEVETIRACETAM
     Dosage: UNK
     Dates: start: 20170422
  8. NOLOTIL [Concomitant]
     Dosage: UNK
     Dates: start: 20170422
  9. PARACETAMOL [Concomitant]
     Active Substance: ACETAMINOPHEN
     Dosage: UNK
     Dates: start: 20170422
  10. TYGACIL [Concomitant]
     Active Substance: TIGECYCLINE
     Dosage: UNK
     Dates: start: 20170421
  11. SODIUM CHLORIDE. [Concomitant]
     Active Substance: SODIUM CHLORIDE
     Dosage: UNK
     Dates: start: 20170422
  12. FLAGYL [Suspect]
     Active Substance: METRONIDAZOLE\METRONIDAZOLE HYDROCHLORIDE
     Indication: PYREXIA
     Dosage: 500 MG, Q8HR
     Route: 065
     Dates: start: 20170408, end: 20170412
  13. ALBUTEIN [Concomitant]
     Active Substance: ALBUMIN HUMAN
     Dosage: UNK
     Dates: start: 20170412
  14. DIPRIVAN [Concomitant]
     Active Substance: PROPOFOL
     Dosage: UNK
     Dates: start: 20170421
  15. KONAKION [Concomitant]
     Active Substance: PHYTONADIONE
     Dosage: UNK
     Dates: start: 20170411
  16. TYGACIL [Concomitant]
     Active Substance: TIGECYCLINE
     Dosage: UNK
     Dates: start: 20170406, end: 20170418
  17. PHYTOMENADIONE [Concomitant]
     Active Substance: PHYTONADIONE
     Dosage: UNK
     Dates: start: 20170419
  18. CEFTAZIDIME;AVIBACTAM ? BP [Suspect]
     Active Substance: AVIBACTAM SODIUM\CEFTAZIDIME
     Dosage: 1 G, Q8HR
     Route: 042
     Dates: start: 20170405, end: 20170408
  19. PROPOFOL. [Suspect]
     Active Substance: PROPOFOL
     Indication: SEDATION
     Dosage: 50 ML, QD
     Route: 065
     Dates: start: 20170421, end: 20200424
  20. NORADRENALINA BRAUN [Concomitant]
     Active Substance: NOREPINEPHRINE BITARTRATE
     Indication: MECHANICAL VENTILATION
     Dosage: UNK
     Dates: start: 20170422
  21. NORADRENALINA BRAUN [Concomitant]
     Active Substance: NOREPINEPHRINE BITARTRATE
     Dosage: UNK
     Dates: start: 20170409, end: 20170419
  22. LINEZOLID. [Concomitant]
     Active Substance: LINEZOLID
     Dosage: UNK
     Dates: start: 20170419
  23. CANCIDAS [Concomitant]
     Active Substance: CASPOFUNGIN ACETATE
     Dosage: UNK
     Dates: start: 20170326
  24. OMEPRAZOL [Concomitant]
     Active Substance: OMEPRAZOLE
     Indication: SPHINCTER OF ODDI DYSFUNCTION
     Dosage: UNK
     Dates: start: 20170318, end: 20170423
  25. RIVOTRIL [Concomitant]
     Active Substance: CLONAZEPAM
     Dosage: UNK
     Dates: start: 20170422
  26. FENTANEST [Concomitant]
     Active Substance: FENTANYL CITRATE
     Indication: ABDOMINAL PAIN
     Dosage: UNK
     Dates: start: 20170318, end: 20170423
  27. OSMOFUNDIN [Concomitant]
     Dosage: UNK
     Dates: start: 20170422

REACTIONS (2)
  - Myoclonic epilepsy [Fatal]
  - Brain oedema [Fatal]

NARRATIVE: CASE EVENT DATE: 20170421
